FAERS Safety Report 25350603 (Version 1)
Quarter: 2025Q2

REPORT INFORMATION
  Report Type: Spontaneous
  Country: GB (occurrence: GB)
  Receive Date: 20250523
  Receipt Date: 20250523
  Transmission Date: 20250716
  Serious: Yes (Hospitalization, Other)
  Sender: SANOFI AVENTIS
  Company Number: GB-002147023-NVSC2025GB055958

PATIENT
  Age: 46 Year
  Sex: Male
  Weight: 90 kg

DRUGS (12)
  1. TAMSULOSIN HYDROCHLORIDE [Suspect]
     Active Substance: TAMSULOSIN HYDROCHLORIDE
     Indication: Bladder disorder
     Dosage: 1 DF, QD (UNK, (ONE TO BE TAKEN EACH DAY), (30 CAPSULE))
     Route: 065
     Dates: start: 20250415
  2. FAMOTIDINE [Suspect]
     Active Substance: FAMOTIDINE
     Indication: Product used for unknown indication
     Dosage: 1 DF, QD
     Route: 065
     Dates: start: 20250415
  3. ATORVASTATIN [Suspect]
     Active Substance: ATORVASTATIN
     Indication: Product used for unknown indication
     Dosage: 1 DF, QD (UNK, (ONE TO BE TAKEN AT NIGHT),)
     Route: 065
     Dates: start: 20250415
  4. CARBAMAZEPINE [Suspect]
     Active Substance: CARBAMAZEPINE
     Indication: Frontal lobe epilepsy
     Dosage: 800 MG, BID
     Route: 065
     Dates: start: 20250415
  5. LACOSAMIDE [Concomitant]
     Active Substance: LACOSAMIDE
     Indication: Product used for unknown indication
     Dosage: 200 MG, BID (200 MG, BID ( 200 MG IN THE MORNING AND 200 MG IN THE NIGHT))
     Route: 065
     Dates: start: 20250415
  6. CLOBAZAM [Concomitant]
     Active Substance: CLOBAZAM
     Indication: Product used for unknown indication
     Dosage: 10 MG, BID  (10 MG (10 MG ONE IN THE MORNING, AND ONE AT NIGHT))
     Route: 065
     Dates: start: 20250415
  7. ACETAMINOPHEN [Concomitant]
     Active Substance: ACETAMINOPHEN
     Indication: Product used for unknown indication
     Route: 065
  8. IBUPROFEN [Concomitant]
     Active Substance: IBUPROFEN
     Indication: Product used for unknown indication
     Route: 065
  9. MAGNESIUM CITRATE [Concomitant]
     Active Substance: MAGNESIUM CITRATE
     Indication: Product used for unknown indication
     Dosage: 2 DF, TID (2 DOSAGE FORM, TID, (0.1 TABLET) (3 TIMES A DAY))
     Route: 065
     Dates: start: 20250501
  10. SUMATRIPTAN SUCCINATE [Concomitant]
     Active Substance: SUMATRIPTAN SUCCINATE
     Indication: Migraine
     Route: 065
     Dates: start: 20250424
  11. CANDESARTAN CILEXETIL [Concomitant]
     Active Substance: CANDESARTAN CILEXETIL
     Indication: Product used for unknown indication
     Dosage: 1 DF, QD (1 DOSAGE FORM, QD (28 TABLET))
     Route: 065
     Dates: start: 20250424
  12. CANDESARTAN CILEXETIL [Concomitant]
     Active Substance: CANDESARTAN CILEXETIL
     Route: 065
     Dates: start: 20250424

REACTIONS (17)
  - Seizure cluster [Unknown]
  - Convulsions local [Unknown]
  - Seizure [Unknown]
  - Condition aggravated [Unknown]
  - Urinary retention [Unknown]
  - Renal disorder [Unknown]
  - Dysarthria [Unknown]
  - Confusional state [Unknown]
  - Aggression [Unknown]
  - Coordination abnormal [Unknown]
  - Eye disorder [Unknown]
  - Migraine [Unknown]
  - Decreased appetite [Unknown]
  - Vision blurred [Unknown]
  - Headache [Unknown]
  - Vomiting [Unknown]
  - Off label use [Unknown]

NARRATIVE: CASE EVENT DATE: 20250415
